FAERS Safety Report 8336237-9 (Version None)
Quarter: 2012Q2

REPORT INFORMATION
  Report Type: 
  Country: None (occurrence: None)
  Receive Date: 20120501
  Receipt Date: 20120423
  Transmission Date: 20120825
  Serious: Yes (Hospitalization)
  Sender: FDA-Public Use
  Company Number: DSU-2012-03265

PATIENT
  Age: 54 Year
  Sex: Female
  Weight: 77.1115 kg

DRUGS (5)
  1. XANAX [Concomitant]
  2. CELEXA [Concomitant]
  3. LISINOPRIL [Concomitant]
  4. BENICAR [Suspect]
     Indication: HYPERTENSION
     Dosage: 40 MG (40 MG, QD), PER ORAL
     Route: 048
  5. SOMA (CARISOPRODOL) (CARISOPRODOL) [Concomitant]

REACTIONS (2)
  - KNEE ARTHROPLASTY [None]
  - FALL [None]
